FAERS Safety Report 8202794-6 (Version None)
Quarter: 2012Q1

REPORT INFORMATION
  Report Type: 
  Country: None (occurrence: None)
  Receive Date: 20120312
  Receipt Date: 20120312
  Transmission Date: 20120608
  Serious: No
  Sender: FDA-Public Use
  Company Number: None

PATIENT
  Sex: Female
  Weight: 70.76 kg

DRUGS (2)
  1. MULTIHANCE [Concomitant]
     Dosage: 14ML
     Route: 065
     Dates: start: 20111206, end: 20111206
  2. MULTIHANCE [Suspect]
     Indication: NUCLEAR MAGNETIC RESONANCE IMAGING BRAIN
     Dosage: 14ML
     Route: 065
     Dates: start: 20111206, end: 20111206

REACTIONS (11)
  - DISTURBANCE IN ATTENTION [None]
  - VISUAL IMPAIRMENT [None]
  - PAIN [None]
  - OEDEMA PERIPHERAL [None]
  - BURNING SENSATION [None]
  - RASH [None]
  - CLUMSINESS [None]
  - TENDERNESS [None]
  - DRY EYE [None]
  - FEELING OF BODY TEMPERATURE CHANGE [None]
  - ACTIVITIES OF DAILY LIVING IMPAIRED [None]
